FAERS Safety Report 8510896-X (Version None)
Quarter: 2012Q3

REPORT INFORMATION
  Report Type: 
  Country: None (occurrence: None)
  Receive Date: 20120703
  Receipt Date: 20120613
  Transmission Date: 20120928
  Serious: Yes (Other)
  Sender: FDA-Public Use
  Company Number: SIM_00384_2012

PATIENT
  Sex: Female

DRUGS (1)
  1. AUGENTROPFEN NR. 2 [Suspect]
     Indication: CONJUNCTIVITIS ALLERGIC
     Dosage: 1 APPLICATION/NI/ OPHTHALMIC
     Route: 047
     Dates: start: 20120607, end: 20120607

REACTIONS (3)
  - PRODUCT DROPPER ISSUE [None]
  - OCULAR HYPERAEMIA [None]
  - EYE INJURY [None]
